FAERS Safety Report 16767939 (Version 1)
Quarter: 2019Q3

REPORT INFORMATION
  Report Type: Spontaneous
  Country: JP (occurrence: JP)
  Receive Date: 20190903
  Receipt Date: 20190903
  Transmission Date: 20191005
  Serious: Yes (Hospitalization, Other)
  Sender: FDA-Public Use
  Company Number: JP-JNJFOC-20190838366

PATIENT
  Age: 77 Year
  Sex: Male

DRUGS (3)
  1. ISONIAZID. [Concomitant]
     Active Substance: ISONIAZID
  2. RIVAROXABAN [Suspect]
     Active Substance: RIVAROXABAN
     Indication: PRODUCT USED FOR UNKNOWN INDICATION
     Dosage: DAILY DOSE 15 MG
     Route: 048
  3. ASPIRIN. [Concomitant]
     Active Substance: ASPIRIN
     Dosage: DAILY DOSE 4 G
     Route: 048

REACTIONS (2)
  - Pericarditis [Unknown]
  - International normalised ratio increased [Unknown]
